FAERS Safety Report 24053370 (Version 2)
Quarter: 2024Q4

REPORT INFORMATION
  Report Type: Spontaneous
  Country: US (occurrence: US)
  Receive Date: 20240705
  Receipt Date: 20241008
  Transmission Date: 20250114
  Serious: Yes (Death, Life-Threatening, Hospitalization, Other)
  Sender: HIKMA
  Company Number: US-MLMSERVICE-20240618-PI097623-00217-2

PATIENT
  Age: 61 Year
  Sex: Female

DRUGS (4)
  1. KETAMINE [Suspect]
     Active Substance: KETAMINE
     Indication: Pain management
     Dosage: UNKNOWN
     Route: 041
  2. METFORMIN [Suspect]
     Active Substance: METFORMIN HYDROCHLORIDE
     Indication: Chronic kidney disease
     Dosage: UNKNOWN
     Route: 065
  3. TYLENOL [Suspect]
     Active Substance: ACETAMINOPHEN
     Indication: Sciatica
     Dosage: UNKNOWN
     Route: 065
  4. IBUPROFEN [Concomitant]
     Active Substance: IBUPROFEN
     Indication: Sciatica
     Dosage: UNKNOWN
     Route: 065

REACTIONS (6)
  - Brain injury [Fatal]
  - Acute respiratory failure [Fatal]
  - Cardiac arrest [Fatal]
  - Metabolic alkalosis [Fatal]
  - Metabolic acidosis [Fatal]
  - Brain death [Fatal]

NARRATIVE: CASE EVENT DATE: 20221001
